FAERS Safety Report 17956993 (Version 2)
Quarter: 2020Q3

REPORT INFORMATION
  Report Type: Spontaneous
  Country: CZ (occurrence: CZ)
  Receive Date: 20200629
  Receipt Date: 20200731
  Transmission Date: 20201103
  Serious: Yes (Hospitalization, Disabling, Other)
  Sender: FDA-Public Use
  Company Number: CZ-AMGEN-CZESP2020101767

PATIENT
  Age: 65 Year
  Sex: Female
  Weight: 55 kg

DRUGS (2)
  1. VIGANTOL [COLECALCIFEROL] [Concomitant]
     Active Substance: CHOLECALCIFEROL
     Indication: OSTEOPOROSIS POSTMENOPAUSAL
     Dosage: 10 DROPS, 3 TIMES/WK
     Dates: start: 2012
  2. PROLIA [Suspect]
     Active Substance: DENOSUMAB
     Indication: OSTEOPOROSIS POSTMENOPAUSAL
     Dosage: 60 MILLIGRAM, Q6MO
     Route: 058
     Dates: start: 20181002

REACTIONS (17)
  - Spinal cord disorder [Unknown]
  - Sensory disturbance [Recovering/Resolving]
  - Lymphadenopathy [Unknown]
  - Spinal osteoarthritis [Unknown]
  - Osteochondrosis [Unknown]
  - Dermal cyst [Unknown]
  - Nephrolithiasis [Unknown]
  - Haemangioma of liver [Unknown]
  - Salivary gland neoplasm [Unknown]
  - Anal incontinence [Recovered/Resolved]
  - Renal cyst [Unknown]
  - Gliosis [Unknown]
  - Urinary incontinence [Recovered/Resolved]
  - Dysaesthesia [Not Recovered/Not Resolved]
  - Hypoaesthesia [Unknown]
  - Mucosal hyperaemia [Unknown]
  - Thyroid mass [Unknown]

NARRATIVE: CASE EVENT DATE: 20200424
